FAERS Safety Report 7049110-3 (Version None)
Quarter: 2010Q4

REPORT INFORMATION
  Report Type: 
  Country: None (occurrence: None)
  Receive Date: 20101018
  Receipt Date: 20101011
  Transmission Date: 20110411
  Serious: Yes (Other)
  Sender: FDA-Public Use
  Company Number: US-JNJFOC-20101003193

PATIENT
  Sex: Male
  Weight: 63.5 kg

DRUGS (2)
  1. DURAGESIC-100 [Suspect]
     Indication: PAIN
     Dosage: (100 UG/HR PLUS  50 UG/HR)
     Route: 062
  2. DURAGESIC-100 [Suspect]
     Dosage: (100 UG/HR PLUS  50 UG/HR)
     Route: 062

REACTIONS (4)
  - DRUG DOSE OMISSION [None]
  - DYSPNOEA [None]
  - HYPERTENSION [None]
  - PRODUCT QUALITY ISSUE [None]
